FAERS Safety Report 21212950 (Version 1)
Quarter: 2022Q3

REPORT INFORMATION
  Report Type: Spontaneous
  Country: US (occurrence: US)
  Receive Date: 20220815
  Receipt Date: 20220815
  Transmission Date: 20221026
  Serious: No
  Sender: FDA-Public Use
  Company Number: US-PFIZER INC-PV202200041814

PATIENT
  Age: 54 Year
  Sex: Female

DRUGS (1)
  1. XELJANZ XR [Suspect]
     Active Substance: TOFACITINIB CITRATE
     Dosage: 11 MG
     Route: 048

REACTIONS (6)
  - Memory impairment [Unknown]
  - Visual impairment [Unknown]
  - Pain [Unknown]
  - COVID-19 [Unknown]
  - Confusional state [Unknown]
  - Disturbance in attention [Unknown]
